FAERS Safety Report 18233337 (Version 1)
Quarter: 2020Q3

REPORT INFORMATION
  Report Type: Spontaneous
  Country: US (occurrence: US)
  Receive Date: 20200904
  Receipt Date: 20200904
  Transmission Date: 20201103
  Serious: No
  Sender: FDA-Public Use
  Company Number: US-009507513-2008USA003871

PATIENT
  Age: 60 Year
  Sex: Female

DRUGS (4)
  1. KEYTRUDA [Suspect]
     Active Substance: PEMBROLIZUMAB
     Indication: CENTRAL NERVOUS SYSTEM LYMPHOMA
     Dosage: 200 MILLIGRAM FOR 6 INFUSIONS
  2. DEXAMETHASONE. [Concomitant]
     Active Substance: DEXAMETHASONE
     Route: 048
  3. KEYTRUDA [Suspect]
     Active Substance: PEMBROLIZUMAB
     Dosage: 200 MILLIGRAM, EVERY 4 WEEKS
  4. TEMODAR [Suspect]
     Active Substance: TEMOZOLOMIDE
     Indication: CENTRAL NERVOUS SYSTEM LYMPHOMA
     Dosage: THREE CYCLES

REACTIONS (2)
  - Pneumonitis [Recovered/Resolved]
  - Product use in unapproved indication [Unknown]
